FAERS Safety Report 14110868 (Version 1)
Quarter: 2017Q4

REPORT INFORMATION
  Report Type: Spontaneous
  Country: US (occurrence: None)
  Receive Date: 20171020
  Receipt Date: 20171020
  Transmission Date: 20180321
  Serious: Yes (Hospitalization)
  Sender: FDA-Public Use
  Company Number: None

PATIENT
  Age: 72 Year
  Sex: Female
  Weight: 64.4 kg

DRUGS (3)
  1. LENALIDOMIDE (CC-5013) [Suspect]
     Active Substance: LENALIDOMIDE
     Dates: end: 20171010
  2. DEXAMETHASONE. [Suspect]
     Active Substance: DEXAMETHASONE
     Dates: end: 20171010
  3. VELCADE [Suspect]
     Active Substance: BORTEZOMIB
     Dates: end: 20171005

REACTIONS (4)
  - Pyrexia [None]
  - Blood glucose increased [None]
  - Confusional state [None]
  - Urinary tract infection [None]

NARRATIVE: CASE EVENT DATE: 20171011
